FAERS Safety Report 11238163 (Version 1)
Quarter: 2015Q3

REPORT INFORMATION
  Report Type: Report from Study
  Country: FR (occurrence: FR)
  Receive Date: 20150703
  Receipt Date: 20150703
  Transmission Date: 20151125
  Serious: Yes (Hospitalization)
  Sender: FDA-Public Use
  Company Number: FR-GLAXOSMITHKLINE-FR2015GSK095214

PATIENT
  Age: 52 Year
  Sex: Male

DRUGS (8)
  1. GLUCOPHAGE [Concomitant]
     Active Substance: METFORMIN HYDROCHLORIDE
  2. PLAVIX [Concomitant]
     Active Substance: CLOPIDOGREL BISULFATE
  3. TAHOR [Concomitant]
     Active Substance: ATORVASTATIN CALCIUM
  4. OMEGA-3-ACID ETHYL ESTERS. [Suspect]
     Active Substance: OMEGA-3-ACID ETHYL ESTERS
     Indication: ISCHAEMIC HEART DISEASE PROPHYLAXIS
     Dosage: UNK
     Dates: start: 20061227
  5. NICOPATCH [Concomitant]
     Active Substance: NICOTINE
  6. TENORMIN [Concomitant]
     Active Substance: ATENOLOL
  7. KARDEGIC [Concomitant]
     Active Substance: ASPIRIN LYSINE
  8. TRIATEC [Concomitant]
     Active Substance: RAMIPRIL

REACTIONS (1)
  - Chest pain [Unknown]

NARRATIVE: CASE EVENT DATE: 20070721
